FAERS Safety Report 16281060 (Version 3)
Quarter: 2019Q3

REPORT INFORMATION
  Report Type: Report from Study
  Country: US (occurrence: US)
  Receive Date: 20190507
  Receipt Date: 20190726
  Transmission Date: 20191004
  Serious: Yes (Hospitalization, Other)
  Sender: FDA-Public Use
  Company Number: US-JNJFOC-20190406813

PATIENT
  Age: 75 Year
  Sex: Male
  Weight: 117 kg

DRUGS (25)
  1. TORSEMIDE. [Concomitant]
     Active Substance: TORSEMIDE
  2. ALBUTEROL SULFATE. [Concomitant]
     Active Substance: ALBUTEROL SULFATE
     Dosage: 90 MCG, PRN, 90MCG/ACTUATION (2 PUFFS TID PRN)
  3. ACETAMINOPHEN W/HYDROCODONE [Concomitant]
     Active Substance: ACETAMINOPHEN\HYDROCODONE
     Dosage: 10-325MG (1 TABLET Q8H PRN)
  4. PRAVASTATIN. [Concomitant]
     Active Substance: PRAVASTATIN
  5. IMBRUVICA [Suspect]
     Active Substance: IBRUTINIB
     Indication: LYMPHOCYTIC LEUKAEMIA
     Dosage: 420 MG, QD
     Route: 048
     Dates: start: 20190131
  6. GLUCOSAMINE CHONDROITIN            /01430901/ [Concomitant]
     Dosage: UNK MG, QD (750-600MG (1 TABLET QD))
  7. IMBRUVICA [Suspect]
     Active Substance: IBRUTINIB
     Indication: CHRONIC LYMPHOCYTIC LEUKAEMIA
  8. FLONASE [Concomitant]
     Active Substance: FLUTICASONE PROPIONATE
     Dosage: 50 MCG, QD (50MCG/ACTUATION (2 SPRAYS EACH NOSTRIL DAILY))
  9. ELIQUIS [Suspect]
     Active Substance: APIXABAN
     Indication: PRODUCT USED FOR UNKNOWN INDICATION
     Dosage: 420 MG, QD
     Route: 065
  10. NORCO [Concomitant]
     Active Substance: ACETAMINOPHEN\HYDROCODONE BITARTRATE
  11. DOXYCYCLINE HYCLATE. [Concomitant]
     Active Substance: DOXYCYCLINE HYCLATE
     Dosage: 100 MG, BID (1 CAPSULE BID X8DAYS)
  12. IMBRUVICA [Suspect]
     Active Substance: IBRUTINIB
     Indication: LYMPHOMA
  13. ALLOPURINOL. [Concomitant]
     Active Substance: ALLOPURINOL
  14. MODAFINIL. [Concomitant]
     Active Substance: MODAFINIL
     Dosage: 200 MG, PRN,(1 TABLET Q8AM PRN)
  15. PYRIDOSTIGMINE BROMIDE. [Concomitant]
     Active Substance: PYRIDOSTIGMINE BROMIDE
  16. SKELAXIN [Concomitant]
     Active Substance: METAXALONE
     Route: 048
  17. ASPIRIN. [Suspect]
     Active Substance: ASPIRIN
     Indication: PRODUCT USED FOR UNKNOWN INDICATION
     Route: 065
  18. MULTIVITAMINS [Concomitant]
     Active Substance: VITAMINS
  19. ASPRIN [Concomitant]
     Active Substance: ASPIRIN
  20. CEFTIN [Concomitant]
     Active Substance: CEFUROXIME AXETIL
     Dosage: 500 MG, BID (1 TABLET BID X8D)
  21. LOVAZA [Concomitant]
     Active Substance: OMEGA-3-ACID ETHYL ESTERS
  22. TYLENOL [Concomitant]
     Active Substance: ACETAMINOPHEN
  23. ZOLPIDEM TARTATE [Concomitant]
     Active Substance: ZOLPIDEM TARTRATE
  24. TRAZODONE [Concomitant]
     Active Substance: TRAZODONE HYDROCHLORIDE
  25. METFORMIN [Concomitant]
     Active Substance: METFORMIN HYDROCHLORIDE

REACTIONS (12)
  - Cardiac failure [Unknown]
  - Jugular vein distension [Unknown]
  - Oedema [Unknown]
  - Decreased appetite [Unknown]
  - Gastrointestinal haemorrhage [Unknown]
  - Haematochezia [Unknown]
  - Dyspnoea exertional [Unknown]
  - Anxiety [Unknown]
  - Pyrexia [Unknown]
  - Cardiac valve disease [Not Recovered/Not Resolved]
  - Anaemia [Unknown]
  - Peripheral swelling [Unknown]

NARRATIVE: CASE EVENT DATE: 201902
